FAERS Safety Report 7396562-5 (Version None)
Quarter: 2011Q1

REPORT INFORMATION
  Report Type: 
  Country: None (occurrence: None)
  Receive Date: 20110325
  Receipt Date: 20110315
  Transmission Date: 20110831
  Serious: Yes (Death, Hospitalization)
  Sender: FDA-Public Use
  Company Number: DKLU1069103

PATIENT
  Age: 5 Year
  Sex: Female

DRUGS (8)
  1. DILANTIN [Concomitant]
  2. SODIUM CITRATE (SODIUM CIRTATE) [Concomitant]
  3. PHLEXY VIT (MULTIVITAMINS) [Concomitant]
  4. ZYRTEC [Concomitant]
  5. SABRIL [Suspect]
     Indication: INFANTILE SPASMS
     Dosage: 250 MG  MILLGRAM(S), 2 IN 1 D, ORAL
     Route: 048
     Dates: start: 20091101, end: 20110307
  6. ROBINUL (GLYCOPYRRONIUM BROMIDE) [Concomitant]
  7. PHENOBARBITAL (PHENOBARBITAL) [Concomitant]
  8. TRANXENE [Concomitant]

REACTIONS (1)
  - RESPIRATORY DISTRESS [None]
